FAERS Safety Report 21403711 (Version 1)
Quarter: 2022Q4

REPORT INFORMATION
  Report Type: Spontaneous
  Country: BR (occurrence: BR)
  Receive Date: 20221003
  Receipt Date: 20221003
  Transmission Date: 20230112
  Serious: Yes (Other)
  Sender: FDA-Public Use
  Company Number: BR-PFIZER INC-202201179683

PATIENT
  Age: 90 Year
  Sex: Female

DRUGS (3)
  1. LORAZEPAM [Suspect]
     Active Substance: LORAZEPAM
     Indication: Insomnia
     Dosage: 2 MG, DAILY, AT NIGHT
     Dates: start: 2017, end: 2022
  2. SEROQUEL XR [Concomitant]
     Active Substance: QUETIAPINE FUMARATE
     Dosage: 50 MG, DAILY
  3. DESIREE [Concomitant]
     Dosage: UNK

REACTIONS (4)
  - Drug dependence [Unknown]
  - Schizophrenia [Unknown]
  - Product use issue [Unknown]
  - Off label use [Unknown]
